FAERS Safety Report 23424617 (Version 3)
Quarter: 2024Q2

REPORT INFORMATION
  Report Type: Report from Study
  Country: US (occurrence: US)
  Receive Date: 20240120
  Receipt Date: 20240520
  Transmission Date: 20240716
  Serious: Yes (Other)
  Sender: FDA-Public Use
  Company Number: US-002147023-NVSC2024US008061

PATIENT
  Sex: Female

DRUGS (2)
  1. LEQVIO [Suspect]
     Active Substance: INCLISIRAN SODIUM
     Indication: Product used for unknown indication
     Dosage: UNK
     Route: 058
     Dates: start: 20231212
  2. LEQVIO [Suspect]
     Active Substance: INCLISIRAN SODIUM
     Dosage: UNK (SECOND INJECTION)
     Route: 065
     Dates: start: 20240312

REACTIONS (9)
  - Neuropathy peripheral [Unknown]
  - Loss of consciousness [Unknown]
  - Alopecia [Unknown]
  - Stress [Unknown]
  - Hypoaesthesia [Unknown]
  - Arthralgia [Unknown]
  - Pain in extremity [Unknown]
  - Dizziness [Unknown]
  - Fatigue [Unknown]
